FAERS Safety Report 15675757 (Version 4)
Quarter: 2019Q1

REPORT INFORMATION
  Report Type: Spontaneous
  Country: US (occurrence: US)
  Receive Date: 20181130
  Receipt Date: 20190122
  Transmission Date: 20190417
  Serious: Yes (Hospitalization, Other)
  Sender: FDA-Public Use
  Company Number: US-AMGEN-USASP2018170644

PATIENT
  Age: 46 Year
  Sex: Female
  Weight: 80.64 kg

DRUGS (3)
  1. NEULASTA [Suspect]
     Active Substance: PEGFILGRASTIM
     Indication: NEUTROPENIA
     Dosage: 6 MG, Q2WK
     Route: 058
     Dates: start: 20181030
  2. CYTOXAN [Suspect]
     Active Substance: CYCLOPHOSPHAMIDE
     Indication: TRIPLE NEGATIVE BREAST CANCER
     Dosage: 600 MG/M2, Q2WK
     Route: 065
     Dates: start: 20181030
  3. ADRIAMYCIN [Suspect]
     Active Substance: DOXORUBICIN HYDROCHLORIDE
     Indication: TRIPLE NEGATIVE BREAST CANCER
     Dosage: 60 MG/M2, Q2WK
     Route: 065
     Dates: start: 20181030

REACTIONS (2)
  - Neutropenia [Recovered/Resolved]
  - Blood count abnormal [Unknown]

NARRATIVE: CASE EVENT DATE: 201811
